FAERS Safety Report 12969828 (Version 1)
Quarter: 2016Q4

REPORT INFORMATION
  Report Type: Spontaneous
  Country: IT (occurrence: IT)
  Receive Date: 20161123
  Receipt Date: 20161123
  Transmission Date: 20170207
  Serious: Yes (Other)
  Sender: FDA-Public Use
  Company Number: IT-TEVA-713829ACC

PATIENT

DRUGS (1)
  1. PACLITAXEL. [Suspect]
     Active Substance: PACLITAXEL

REACTIONS (8)
  - Thrombocytopenia [Unknown]
  - Alopecia [Unknown]
  - Leukopenia [Unknown]
  - Anaemia [Unknown]
  - Stomatitis [Unknown]
  - Neutropenia [Unknown]
  - Bone marrow failure [Unknown]
  - Lymphopenia [Unknown]
